FAERS Safety Report 5705368-1 (Version None)
Quarter: 2008Q2

REPORT INFORMATION
  Report Type: 
  Country: None (occurrence: None)
  Receive Date: 20080415
  Receipt Date: 20080403
  Transmission Date: 20081010
  Serious: Yes (Other)
  Sender: FDA-Public Use
  Company Number: US-JNJFOC-20080105542

PATIENT
  Age: 36 Year
  Sex: Female
  Weight: 58.97 kg

DRUGS (1)
  1. RETIN-A MICRO [Suspect]
     Indication: DRUG USE FOR UNKNOWN INDICATION
     Route: 061

REACTIONS (7)
  - BURNING SENSATION [None]
  - DRY SKIN [None]
  - EYE SWELLING [None]
  - NASAL OEDEMA [None]
  - PRURITUS [None]
  - RASH MACULAR [None]
  - SWELLING FACE [None]
